FAERS Safety Report 10218418 (Version 2)
Quarter: 2014Q2

REPORT INFORMATION
  Report Type: Spontaneous
  Country: IL (occurrence: IL)
  Receive Date: 20140605
  Receipt Date: 20140616
  Transmission Date: 20141212
  Serious: Yes (Hospitalization, Other)
  Sender: FDA-Public Use
  Company Number: IL-JNJFOC-20140518809

PATIENT
  Age: 96 Year
  Sex: Female

DRUGS (6)
  1. XARELTO [Suspect]
     Indication: PRODUCT USED FOR UNKNOWN INDICATION
     Route: 048
  2. HMG COA REDUCTASE INHIBITORS [Concomitant]
     Route: 065
  3. XATRAL [Concomitant]
     Route: 065
  4. RECITAL [Concomitant]
     Route: 065
  5. ALDACTONE A [Concomitant]
     Route: 065
  6. OPTALGIN [Concomitant]
     Route: 065

REACTIONS (4)
  - Haemorrhoidal haemorrhage [Recovered/Resolved]
  - Haemoglobin decreased [Recovered/Resolved]
  - Pneumonia [Unknown]
  - Colon neoplasm [Unknown]
